FAERS Safety Report 21008094 (Version 1)
Quarter: 2022Q3

REPORT INFORMATION
  Report Type: Report from Study
  Country: US (occurrence: US)
  Receive Date: 20220627
  Receipt Date: 20220627
  Transmission Date: 20221027
  Serious: Yes (Hospitalization, Other)
  Sender: FDA-Public Use
  Company Number: US-NOVARTISPH-NVSC2020US160032

PATIENT
  Age: 4 Month
  Sex: Male
  Weight: 10.4 kg

DRUGS (26)
  1. TRAMETINIB [Suspect]
     Active Substance: TRAMETINIB
     Indication: Ganglioglioma
     Dosage: 0.175 MG, QD
     Route: 048
     Dates: start: 20200506
  2. TRAMETINIB [Suspect]
     Active Substance: TRAMETINIB
     Dosage: 0.176 MG, QD
     Route: 048
     Dates: start: 20200506
  3. TRAMETINIB [Suspect]
     Active Substance: TRAMETINIB
     Dosage: 0.246 MG, QD
     Route: 048
     Dates: start: 20200506
  4. TRAMETINIB [Suspect]
     Active Substance: TRAMETINIB
     Dosage: 0.281 MG, QD
     Route: 048
     Dates: start: 20200506
  5. TRAMETINIB [Suspect]
     Active Substance: TRAMETINIB
     Dosage: 0.281 MG
     Route: 048
     Dates: start: 20200506, end: 20210206
  6. TRAMETINIB [Suspect]
     Active Substance: TRAMETINIB
     Dosage: 0.246 MG, QD
     Route: 048
     Dates: start: 20200509
  7. TRAMETINIB [Suspect]
     Active Substance: TRAMETINIB
     Dosage: 2.6 ML
     Route: 048
  8. DABRAFENIB [Suspect]
     Active Substance: DABRAFENIB
     Indication: Ganglioglioma
     Dosage: 1.175 MG, QD
     Route: 048
     Dates: start: 20200506
  9. DABRAFENIB [Suspect]
     Active Substance: DABRAFENIB
     Dosage: 20 MG, BID
     Route: 048
     Dates: start: 20200506
  10. DABRAFENIB [Suspect]
     Active Substance: DABRAFENIB
     Dosage: 20 MG, BID
     Route: 048
     Dates: start: 20200506
  11. DABRAFENIB [Suspect]
     Active Substance: DABRAFENIB
     Dosage: 25 MG, BID (20 MG QD AM; 30 MG QD PM)
     Route: 048
     Dates: start: 20200506
  12. DABRAFENIB [Suspect]
     Active Substance: DABRAFENIB
     Dosage: 20 MG
     Route: 048
     Dates: start: 20200506, end: 20210206
  13. DABRAFENIB [Suspect]
     Active Substance: DABRAFENIB
     Dosage: 20 MG, BID
     Route: 048
     Dates: start: 20200509
  14. DABRAFENIB [Suspect]
     Active Substance: DABRAFENIB
     Dosage: 10 MG, BID
     Route: 048
  15. DIPHENHYDRAMINE [Concomitant]
     Active Substance: DIPHENHYDRAMINE
     Indication: Product used for unknown indication
     Dosage: UNK
     Route: 065
  16. LORAZEPAM [Concomitant]
     Active Substance: LORAZEPAM
     Indication: Product used for unknown indication
     Dosage: UNK
     Route: 065
  17. ONDANSETRON [Concomitant]
     Active Substance: ONDANSETRON
     Indication: Product used for unknown indication
     Dosage: UNK
     Route: 065
  18. CHOLECALCIFEROL [Concomitant]
     Active Substance: CHOLECALCIFEROL
     Indication: Product used for unknown indication
     Dosage: UNK
     Route: 065
  19. FAMOTIDINE [Concomitant]
     Active Substance: FAMOTIDINE
     Indication: Product used for unknown indication
     Dosage: UNK
     Route: 065
  20. LEVETIRACETAM [Concomitant]
     Active Substance: LEVETIRACETAM
     Indication: Seizure
     Dosage: 20 MG/KG, BID
     Route: 065
     Dates: start: 20200330, end: 20200723
  21. DEXAMETHASONE [Concomitant]
     Active Substance: DEXAMETHASONE
     Indication: Product used for unknown indication
     Dosage: UNK
     Route: 065
  22. OXCARBAZEPINE [Concomitant]
     Active Substance: OXCARBAZEPINE
     Indication: Product used for unknown indication
     Route: 065
  23. SULFAMETHOXAZOLE\TRIMETHOPRIM [Concomitant]
     Active Substance: SULFAMETHOXAZOLE\TRIMETHOPRIM
     Indication: Product used for unknown indication
     Dosage: UNK
     Route: 065
  24. ACETAMINOPHEN [Concomitant]
     Active Substance: ACETAMINOPHEN
     Indication: Product used for unknown indication
     Dosage: UNK
     Route: 065
  25. KENALOG [Concomitant]
     Active Substance: TRIAMCINOLONE ACETONIDE
     Indication: Product used for unknown indication
     Dosage: UNK
     Route: 065
  26. ARTIFICIAL TEARS [Concomitant]
     Active Substance: GLYCERIN\HYPROMELLOSES\POLYETHYLENE GLYCOL 400
     Indication: Product used for unknown indication
     Dosage: UNK
     Route: 065

REACTIONS (65)
  - Stridor [Recovered/Resolved]
  - Cough [Recovered/Resolved]
  - Vomiting [Recovered/Resolved]
  - Nasal congestion [Recovered/Resolved]
  - Sneezing [Recovered/Resolved]
  - Pharyngitis [Not Recovered/Not Resolved]
  - Bronchiolitis [Not Recovered/Not Resolved]
  - Hypoxia [Not Recovered/Not Resolved]
  - Pneumonitis aspiration [Not Recovered/Not Resolved]
  - Bradycardia [Recovered/Resolved]
  - Congenital arterial malformation [Not Recovered/Not Resolved]
  - Haematochezia [Not Recovered/Not Resolved]
  - Hyperbilirubinaemia [Not Recovered/Not Resolved]
  - Chronic respiratory failure [Not Recovered/Not Resolved]
  - Central sleep apnoea syndrome [Not Recovered/Not Resolved]
  - Acute respiratory failure [Unknown]
  - Eczema [Recovered/Resolved]
  - Eczema [Not Recovered/Not Resolved]
  - Hypertension [Recovered/Resolved]
  - Haematocrit decreased [Recovered/Resolved]
  - Mean cell volume decreased [Recovered/Resolved]
  - Red cell distribution width increased [Recovered/Resolved]
  - Thrombocytosis [Not Recovered/Not Resolved]
  - Mean platelet volume decreased [Not Recovered/Not Resolved]
  - Neutrophilia [Not Recovered/Not Resolved]
  - Hyponatraemia [Recovered/Resolved]
  - Globulins decreased [Recovered/Resolved]
  - Blood bilirubin decreased [Recovered/Resolved]
  - Aspartate aminotransferase increased [Recovered/Resolved]
  - Hypotonia [Recovering/Resolving]
  - Lymphocyte count decreased [Recovered/Resolved]
  - Monocyte count increased [Recovered/Resolved]
  - Mean cell haemoglobin decreased [Recovered/Resolved]
  - Leukocytosis [Recovered/Resolved]
  - Haematocrit decreased [Recovered/Resolved]
  - Anaemia [Recovered/Resolved]
  - Serum ferritin decreased [Not Recovered/Not Resolved]
  - Red blood cell count decreased [Not Recovered/Not Resolved]
  - Cerebral disorder [Recovering/Resolving]
  - Product administration error [Recovered/Resolved]
  - Product administration error [Recovered/Resolved]
  - Injury [Recovered/Resolved]
  - Lymphocyte count [Not Recovered/Not Resolved]
  - Eosinophil count decreased [Not Recovered/Not Resolved]
  - Globulins decreased [Recovered/Resolved]
  - Blood alkaline phosphatase decreased [Not Recovered/Not Resolved]
  - Constipation [Not Recovered/Not Resolved]
  - Aspartate aminotransferase increased [Not Recovered/Not Resolved]
  - Thyroxine free decreased [Recovered/Resolved]
  - Wheezing [Recovered/Resolved]
  - Anal fissure [Recovered/Resolved]
  - Wheezing [Not Recovered/Not Resolved]
  - Vomiting [Not Recovered/Not Resolved]
  - Rhinovirus infection [Not Recovered/Not Resolved]
  - Pyrexia [Recovered/Resolved]
  - Blood chloride decreased [Not Recovered/Not Resolved]
  - Haematocrit increased [Recovered/Resolved]
  - Lymphocyte count decreased [Recovered/Resolved]
  - PCO2 increased [Not Recovered/Not Resolved]
  - Tachycardia [Recovered/Resolved]
  - Monocyte count increased [Not Recovered/Not Resolved]
  - Blood urea increased [Not Recovered/Not Resolved]
  - Protein total increased [Not Recovered/Not Resolved]
  - Facial spasm [Recovering/Resolving]
  - Hypertension [Not Recovered/Not Resolved]

NARRATIVE: CASE EVENT DATE: 20200506
